FAERS Safety Report 4338510-8 (Version None)
Quarter: 2004Q2

REPORT INFORMATION
  Report Type: 
  Country: None (occurrence: None)
  Receive Date: 20040414
  Receipt Date: 20040407
  Transmission Date: 20050107
  Serious: Yes (Hospitalization)
  Sender: FDA-Public Use
  Company Number: FR-GLAXOSMITHKLINE-B0329224A

PATIENT
  Age: 70 Year
  Sex: Female

DRUGS (5)
  1. AUGMENTIN [Suspect]
     Indication: BRONCHIAL OBSTRUCTION
     Route: 048
     Dates: start: 20040117, end: 20040127
  2. AVLOCARDYL [Concomitant]
     Route: 048
  3. ELUDRIL [Concomitant]
     Route: 002
  4. MICROLAX [Concomitant]
     Route: 054
  5. SCOPOLAMINE [Concomitant]
     Route: 065

REACTIONS (4)
  - DIARRHOEA [None]
  - DYSPHAGIA [None]
  - FACE OEDEMA [None]
  - VOMITING [None]
